FAERS Safety Report 14964536 (Version 4)
Quarter: 2018Q4

REPORT INFORMATION
  Report Type: Spontaneous
  Country: FR (occurrence: FR)
  Receive Date: 20180601
  Receipt Date: 20181124
  Transmission Date: 20190204
  Serious: Yes (Hospitalization)
  Sender: FDA-Public Use
  Company Number: FR-TEVA-2018-FR-899034

PATIENT
  Age: 75 Year
  Sex: Male
  Weight: 101 kg

DRUGS (10)
  1. LIPANTHYL [Suspect]
     Active Substance: FENOFIBRATE
     Indication: DYSLIPIDAEMIA
     Dosage: 145 MILLIGRAM DAILY;
     Route: 048
     Dates: end: 20180217
  2. ESOMEPRAZOLE. [Suspect]
     Active Substance: ESOMEPRAZOLE MAGNESIUM
     Indication: PRODUCT USED FOR UNKNOWN INDICATION
     Route: 048
     Dates: end: 20180217
  3. XTANDI [Suspect]
     Active Substance: ENZALUTAMIDE
     Indication: PROSTATE CANCER METASTATIC
     Dosage: 120 MILLIGRAM DAILY;
     Route: 048
     Dates: start: 201708
  4. XTANDI [Suspect]
     Active Substance: ENZALUTAMIDE
     Route: 048
     Dates: start: 201708
  5. INNOHEP [Suspect]
     Active Substance: TINZAPARIN SODIUM
     Indication: PULMONARY EMBOLISM
     Dosage: 1 DOSAGE FORMS DAILY;
     Route: 058
     Dates: start: 201709
  6. SEROPLEX [Suspect]
     Active Substance: ESCITALOPRAM OXALATE
     Indication: DEPRESSION
     Dosage: 10 MILLIGRAM DAILY;
     Route: 048
     Dates: end: 20180217
  7. AMLOR [Suspect]
     Active Substance: AMLODIPINE BESYLATE
     Indication: HYPERTENSION
     Route: 048
     Dates: end: 20180217
  8. TRAMADOL BASE [Suspect]
     Active Substance: TRAMADOL
     Indication: GAIT DISTURBANCE
     Route: 048
     Dates: end: 20180217
  9. DECAPEPTYL [Suspect]
     Active Substance: TRIPTORELIN
     Indication: PROSTATE CANCER METASTATIC
     Route: 030
  10. NOVONORM [Suspect]
     Active Substance: REPAGLINIDE
     Indication: DIABETES MELLITUS
     Route: 048
     Dates: end: 20180217

REACTIONS (2)
  - Cholestasis [Not Recovered/Not Resolved]
  - Prescribed underdose [Unknown]

NARRATIVE: CASE EVENT DATE: 201708
